FAERS Safety Report 25901220 (Version 3)
Quarter: 2025Q4

REPORT INFORMATION
  Report Type: Spontaneous
  Country: JP (occurrence: JP)
  Receive Date: 20251009
  Receipt Date: 20251030
  Transmission Date: 20260117
  Serious: Yes (Hospitalization)
  Sender: PFIZER
  Company Number: JP-PFIZER INC-PV202500119254

PATIENT
  Age: 3 Decade
  Sex: Female

DRUGS (3)
  1. METHYLPREDNISOLONE SODIUM SUCCINATE [Suspect]
     Active Substance: METHYLPREDNISOLONE SODIUM SUCCINATE
     Indication: Nasopharyngitis
     Route: 041
  2. FLOMOXEF [Concomitant]
     Active Substance: FLOMOXEF
     Indication: Nasopharyngitis
     Dosage: UNK
     Route: 042
  3. FOSFOMYCIN [Concomitant]
     Active Substance: FOSFOMYCIN
     Indication: Nasopharyngitis
     Dosage: UNK
     Route: 042

REACTIONS (5)
  - Anaphylactic shock [Recovering/Resolving]
  - Erythema [Unknown]
  - Incontinence [Unknown]
  - Skin test positive [Unknown]
  - Off label use [Unknown]
